FAERS Safety Report 8189654-4 (Version None)
Quarter: 2012Q1

REPORT INFORMATION
  Report Type: 
  Country: None (occurrence: None)
  Receive Date: 20120221
  Receipt Date: 20120109
  Transmission Date: 20120608
  Serious: No
  Sender: FDA-Public Use
  Company Number: 049428

PATIENT
  Age: 39 Year
  Sex: Male
  Weight: 49.9 kg

DRUGS (4)
  1. OXCARBAZEPINE [Concomitant]
  2. VALIUM [Concomitant]
  3. LACOSAMIDE [Suspect]
     Indication: CONVULSION
     Dosage: (200 MG BID ORAL)
     Route: 048
     Dates: start: 20111018
  4. ZOLPIDEM [Concomitant]

REACTIONS (6)
  - POLLAKIURIA [None]
  - PHARYNGEAL ERYTHEMA [None]
  - URINE FLOW DECREASED [None]
  - EAR INFECTION [None]
  - ORAL MUCOSAL ERUPTION [None]
  - COUGH [None]
